FAERS Safety Report 6033001-0 (Version None)
Quarter: 2009Q1

REPORT INFORMATION
  Report Type: 
  Country: None (occurrence: None)
  Receive Date: 20090109
  Receipt Date: 20090107
  Transmission Date: 20090719
  Serious: Yes (Other)
  Sender: FDA-Public Use
  Company Number: IT-BRISTOL-MYERS SQUIBB COMPANY-14462097

PATIENT
  Age: 76 Year
  Sex: Male

DRUGS (1)
  1. COUMADIN [Suspect]
     Indication: ANTICOAGULANT THERAPY
     Route: 048
     Dates: start: 20060101, end: 20081226

REACTIONS (2)
  - EPISTAXIS [None]
  - THROMBOCYTOPENIA [None]
